FAERS Safety Report 4519975-5 (Version None)
Quarter: 2004Q4

REPORT INFORMATION
  Report Type: 
  Country: None (occurrence: None)
  Receive Date: 20041207
  Receipt Date: 20041129
  Transmission Date: 20050328
  Serious: Yes (Life-Threatening, Hospitalization, Disabling)
  Sender: FDA-Public Use
  Company Number: US-MERCK-0411USA04177

PATIENT
  Age: 49 Year
  Sex: Male

DRUGS (4)
  1. VIOXX [Suspect]
     Indication: PAIN
     Route: 048
     Dates: start: 20040801, end: 20040901
  2. LOPRESSOR [Concomitant]
     Route: 065
  3. OXYCONTIN [Concomitant]
     Route: 065
  4. OXYCODONE [Concomitant]
     Route: 065

REACTIONS (3)
  - AORTIC INJURY [None]
  - LOSS OF CONSCIOUSNESS [None]
  - ROAD TRAFFIC ACCIDENT [None]
